FAERS Safety Report 10041215 (Version 1)
Quarter: 2014Q1

REPORT INFORMATION
  Report Type: Spontaneous
  Country: US (occurrence: US)
  Receive Date: 20140327
  Receipt Date: 20140327
  Transmission Date: 20141002
  Serious: Yes (Hospitalization)
  Sender: FDA-Public Use
  Company Number: US-SA-2014SA037414

PATIENT
  Age: 41 Year
  Sex: Female
  Weight: 75 kg

DRUGS (6)
  1. HECTOROL [Suspect]
     Indication: PRODUCT USED FOR UNKNOWN INDICATION
     Route: 042
     Dates: start: 20131217
  2. EPOGEN [Suspect]
     Indication: PRODUCT USED FOR UNKNOWN INDICATION
     Dosage: DOSE:2000 UNIT(S)
     Route: 042
     Dates: start: 20131217
  3. VENOFER [Suspect]
     Indication: NEPHROGENIC ANAEMIA
     Route: 042
     Dates: start: 20131217
  4. VENOFER [Suspect]
     Indication: NEPHROGENIC ANAEMIA
     Route: 065
  5. NATURALYTE [Concomitant]
  6. NORMAL SALINE [Concomitant]

REACTIONS (9)
  - Hypotension [Recovered/Resolved]
  - Altered state of consciousness [Recovered/Resolved]
  - Staring [Recovered/Resolved]
  - Lack of spontaneous speech [Recovered/Resolved]
  - Blood glucose increased [Unknown]
  - Discomfort [Recovered/Resolved]
  - Syncope [Unknown]
  - Loss of consciousness [Recovered/Resolved]
  - Hypertension [Unknown]
